FAERS Safety Report 9522794 (Version 6)
Quarter: 2014Q1

REPORT INFORMATION
  Report Type: Report from Study
  Country: CA (occurrence: CA)
  Receive Date: 20130913
  Receipt Date: 20140320
  Transmission Date: 20141002
  Serious: Yes (Hospitalization)
  Sender: FDA-Public Use
  Company Number: CA-VERTEX PHARMACEUTICALS INC-2013-009424

PATIENT
  Age: 40 Year
  Sex: Male
  Weight: 79 kg

DRUGS (17)
  1. VX-809 FDC [Suspect]
     Indication: CYSTIC FIBROSIS
     Dosage: 600 MG, QD
     Route: 048
     Dates: start: 20130827
  2. VX-770 FDC [Suspect]
     Indication: CYSTIC FIBROSIS
     Dosage: 250 MG, QD
     Route: 048
     Dates: start: 20130827
  3. VX-770 [Suspect]
     Indication: CYSTIC FIBROSIS
     Dosage: 250 MG, QD
     Route: 048
     Dates: start: 20130827
  4. TOBI [Concomitant]
     Indication: PSEUDOMONAS INFECTION
     Dosage: 112 ?G, BID
     Route: 055
     Dates: start: 201208
  5. AZITHROMYCIN [Concomitant]
     Indication: CYSTIC FIBROSIS LUNG
     Dosage: 250 MG, QD
     Route: 048
     Dates: start: 200302
  6. VENTOLIN [Concomitant]
     Indication: CYSTIC FIBROSIS LUNG
     Dosage: 4 PUFFS BID
     Route: 055
     Dates: start: 201208
  7. PULMICORT [Concomitant]
     Indication: CYSTIC FIBROSIS LUNG
     Dosage: 800 ?G, BID
     Route: 055
     Dates: start: 200908
  8. ADVAIR [Concomitant]
     Indication: CYSTIC FIBROSIS LUNG
     Dosage: 500 ?G, BID
     Route: 055
     Dates: start: 200701
  9. NEILMED SINUS RINSE [Concomitant]
     Indication: UPPER-AIRWAY COUGH SYNDROME
     Dosage: UNK, BID
     Route: 045
     Dates: start: 201304, end: 20130907
  10. CREON 25 [Concomitant]
     Indication: NUTRITIONAL SUPPLEMENTATION
     Dosage: 2-3 TABS WITH SNACKS
     Route: 048
     Dates: start: 2000
  11. CREON 25 [Concomitant]
     Dosage: 5-6 TABS WITH MEALS
     Route: 048
     Dates: start: 2000
  12. FLINTSTONE VITAMINS W/IRON [Concomitant]
     Indication: NUTRITIONAL SUPPLEMENTATION
     Dosage: 2 TABS, QD
     Route: 048
     Dates: start: 201307
  13. VITAMIN E [Concomitant]
     Indication: NUTRITIONAL SUPPLEMENTATION
     Dosage: 400 IU, QD
     Route: 048
     Dates: start: 201307
  14. VITAMIN D [Concomitant]
     Indication: NUTRITIONAL SUPPLEMENTATION
     Dosage: 3000 IU, QD
     Route: 048
     Dates: start: 201303
  15. ULORIC [Concomitant]
     Indication: GOUT
     Dosage: 80 MG, QD
     Route: 048
     Dates: start: 20120810
  16. HYPERTONIC SALINE SOLUTION [Concomitant]
     Indication: CYSTIC FIBROSIS LUNG
     Dosage: 50 MG, PRN
     Route: 048
     Dates: start: 20130723
  17. INDOMETHACIN [Concomitant]
     Indication: GOUT
     Dosage: 50 MG, PRN
     Route: 048
     Dates: start: 20130726

REACTIONS (1)
  - Pneumonia [Recovered/Resolved]
